FAERS Safety Report 9374148 (Version 1)
Quarter: 2013Q2

REPORT INFORMATION
  Report Type: Spontaneous
  Country: US (occurrence: US)
  Receive Date: 20130628
  Receipt Date: 20130628
  Transmission Date: 20140414
  Serious: No
  Sender: FDA-Public Use
  Company Number: US-BIOGENIDEC-2013BI057153

PATIENT
  Sex: Female

DRUGS (5)
  1. TYSABRI [Suspect]
     Indication: MULTIPLE SCLEROSIS
     Route: 042
  2. TYSABRI [Suspect]
     Indication: MULTIPLE SCLEROSIS
     Route: 042
     Dates: start: 20061127, end: 20080807
  3. TYSABRI [Suspect]
     Indication: MULTIPLE SCLEROSIS
     Route: 042
     Dates: start: 20081001, end: 20100629
  4. TYSABRI [Suspect]
     Indication: MULTIPLE SCLEROSIS
     Route: 042
     Dates: start: 20110112
  5. AVONEX [Concomitant]
     Indication: MULTIPLE SCLEROSIS
     Route: 030
     Dates: start: 20011201

REACTIONS (14)
  - Anaemia [Not Recovered/Not Resolved]
  - Hemiparesis [Not Recovered/Not Resolved]
  - Fungal infection [Recovered/Resolved with Sequelae]
  - Blood triglycerides increased [Not Recovered/Not Resolved]
  - Systemic lupus erythematosus [Unknown]
  - Osteoarthritis [Unknown]
  - Chest X-ray abnormal [Recovered/Resolved]
  - Frustration [Unknown]
  - Insomnia [Unknown]
  - Mental impairment [Unknown]
  - Tremor [Unknown]
  - Hypertension [Not Recovered/Not Resolved]
  - Multiple sclerosis relapse [Recovered/Resolved]
  - Respiratory tract infection [Recovered/Resolved with Sequelae]
